FAERS Safety Report 16841359 (Version 4)
Quarter: 2022Q2

REPORT INFORMATION
  Report Type: Report from Study
  Country: CA (occurrence: CA)
  Receive Date: 20190923
  Receipt Date: 20220405
  Transmission Date: 20220721
  Serious: Yes (Hospitalization)
  Sender: FDA-Public Use
  Company Number: PHHY2019CA218351

PATIENT
  Age: 34 Year
  Sex: Male

DRUGS (3)
  1. ERELZI [Suspect]
     Active Substance: ETANERCEPT-SZZS
     Indication: Ankylosing spondylitis
     Dosage: 50 MG, QW (SENSOREADY PEN)
     Route: 058
     Dates: start: 20190912
  2. VOLTAREN [Concomitant]
     Active Substance: DICLOFENAC SODIUM
     Indication: Product used for unknown indication
     Dosage: 1 DF, BID
     Route: 048
     Dates: start: 201601
  3. CANNABIDIOL [Concomitant]
     Active Substance: CANNABIDIOL
     Indication: Product used for unknown indication
     Dosage: UNK
     Route: 061

REACTIONS (15)
  - Paraesthesia [Unknown]
  - Vision blurred [Unknown]
  - Asthenia [Unknown]
  - Palpitations [Unknown]
  - Cerebrovascular accident [Unknown]
  - Fatigue [Unknown]
  - Blood pressure abnormal [Unknown]
  - Dry mouth [Unknown]
  - Neck pain [Unknown]
  - Back pain [Unknown]
  - Arthralgia [Unknown]
  - Joint swelling [Unknown]
  - Tendon discomfort [Unknown]
  - Musculoskeletal stiffness [Unknown]
  - General physical health deterioration [Unknown]

NARRATIVE: CASE EVENT DATE: 20190901
